FAERS Safety Report 9648151 (Version 3)
Quarter: 2013Q4

REPORT INFORMATION
  Report Type: Spontaneous
  Country: JP (occurrence: JP)
  Receive Date: 20131028
  Receipt Date: 20131205
  Transmission Date: 20140711
  Serious: Yes (Other)
  Sender: FDA-Public Use
  Company Number: PHHY2013JP119221

PATIENT
  Age: 70 Year
  Sex: Male
  Weight: 62 kg

DRUGS (9)
  1. AFINITOR [Suspect]
     Indication: RENAL CELL CARCINOMA
     Dosage: 5 MG, DAILY
     Route: 048
     Dates: start: 20130913, end: 20131003
  2. AFINITOR [Suspect]
     Dosage: 5 MG, DAILY
     Route: 048
     Dates: start: 20131031
  3. DIOVAN [Concomitant]
     Dosage: 80 MG
     Route: 048
     Dates: start: 20121126
  4. SENNOSIDE [Concomitant]
     Dosage: 12 MG
     Route: 048
  5. GANATON [Concomitant]
     Dosage: 150 MG
     Route: 048
  6. URIEF [Concomitant]
     Dosage: 8 MG
     Route: 048
  7. MAGLAX [Concomitant]
     Dosage: 1980 MG
     Route: 048
  8. OMEPRAZON [Concomitant]
     Dosage: 20 MG
     Route: 048
  9. THYRADIN [Concomitant]
     Route: 048
     Dates: start: 20121207

REACTIONS (1)
  - Ileus [Recovered/Resolved]
